FAERS Safety Report 11330356 (Version 1)
Quarter: 2015Q3

REPORT INFORMATION
  Report Type: Spontaneous
  Country: US (occurrence: US)
  Receive Date: 20150803
  Receipt Date: 20150803
  Transmission Date: 20151125
  Serious: Yes (Hospitalization)
  Sender: FDA-Public Use
  Company Number: US-BAYER-2015-305854

PATIENT
  Age: 85 Year
  Sex: Female

DRUGS (12)
  1. CLONIDINE. [Concomitant]
     Active Substance: CLONIDINE
     Dosage: UNK
     Route: 065
  2. AMLODIPINE [Concomitant]
     Active Substance: AMLODIPINE BESYLATE
     Route: 065
  3. XARELTO [Suspect]
     Active Substance: RIVAROXABAN
     Indication: ATRIAL FIBRILLATION
     Dosage: 15 MG, UNK
     Route: 048
     Dates: start: 20140318, end: 201406
  4. ACETYLSALICYLIC ACID (} 100 MG) [Suspect]
     Active Substance: ASPIRIN
     Indication: CARDIAC DISORDER
     Dosage: UNK
     Route: 065
  5. CARAFATE [Concomitant]
     Active Substance: SUCRALFATE
     Dosage: UNK
     Route: 065
  6. GLIPIZIDE. [Concomitant]
     Active Substance: GLIPIZIDE
     Dosage: UNK
     Route: 065
  7. PANTOPRAZOLE [Concomitant]
     Active Substance: PANTOPRAZOLE SODIUM
     Dosage: UNK
     Route: 065
  8. XARELTO [Suspect]
     Active Substance: RIVAROXABAN
     Indication: CEREBROVASCULAR ACCIDENT PROPHYLAXIS
  9. IRON [Concomitant]
     Active Substance: IRON
     Dosage: UNK
     Route: 065
  10. XARELTO [Suspect]
     Active Substance: RIVAROXABAN
     Indication: THROMBOSIS PROPHYLAXIS
  11. LASIX [Concomitant]
     Active Substance: FUROSEMIDE
     Dosage: UNK
     Route: 065
  12. FUROSEMIDE. [Concomitant]
     Active Substance: FUROSEMIDE
     Dosage: UNK
     Route: 065

REACTIONS (2)
  - Upper gastrointestinal haemorrhage [Unknown]
  - Anaemia [Unknown]

NARRATIVE: CASE EVENT DATE: 20140619
